FAERS Safety Report 22016581 (Version 1)
Quarter: 2023Q1

REPORT INFORMATION
  Report Type: Report from Study
  Country: US (occurrence: US)
  Receive Date: 20230221
  Receipt Date: 20230221
  Transmission Date: 20230418
  Serious: Yes (Other)
  Sender: FDA-Public Use
  Company Number: US-002147023-NVSC2023US035902

PATIENT
  Age: 80 Year
  Sex: Female

DRUGS (1)
  1. ENTRESTO [Suspect]
     Active Substance: SACUBITRIL\VALSARTAN
     Indication: Cardiac failure
     Dosage: 50 MG, BID (2 TABLETS)
     Route: 048
     Dates: start: 202208

REACTIONS (4)
  - Cardiac failure [Unknown]
  - Aortic aneurysm [Unknown]
  - Renal disorder [Unknown]
  - Hypertension [Unknown]

NARRATIVE: CASE EVENT DATE: 20230201
